FAERS Safety Report 10459459 (Version 2)
Quarter: 2014Q4

REPORT INFORMATION
  Report Type: Spontaneous
  Country: JP (occurrence: JP)
  Receive Date: 20140917
  Receipt Date: 20141218
  Transmission Date: 20150528
  Serious: Yes (Death)
  Sender: FDA-Public Use
  Company Number: JP-MALLINCKRODT-T201403496

PATIENT
  Age: 74 Year
  Sex: Male
  Weight: 49 kg

DRUGS (12)
  1. ASPARA-CA [Concomitant]
     Active Substance: CALCIUM ASPARTATE
     Dosage: 1200 MG, UNK
     Route: 048
     Dates: start: 20140624, end: 20140708
  2. SEROQUEL [Concomitant]
     Active Substance: QUETIAPINE FUMARATE
     Dosage: 25 MG, UNK
     Route: 048
     Dates: start: 20140619
  3. METHADONE [Suspect]
     Active Substance: METHADONE HYDROCHLORIDE
     Indication: CANCER PAIN
     Dosage: 10 MG, (30 MG DAILY DOSE)
     Route: 048
     Dates: start: 20140624, end: 20140831
  4. NAIXAN [Concomitant]
     Active Substance: NAPROXEN SODIUM
     Dosage: 300 MG, UNK
     Route: 048
     Dates: start: 20140619
  5. ALFACALCIDOL [Concomitant]
     Active Substance: ALFACALCIDOL
     Dosage: 0.5 ?G, UNK
     Route: 048
     Dates: start: 20140625, end: 20140708
  6. BETAMETHASONE [Concomitant]
     Active Substance: BETAMETHASONE
     Dosage: 1 MG, UNK
     Route: 048
     Dates: start: 20140619
  7. LANSOPRAZOLE. [Concomitant]
     Active Substance: LANSOPRAZOLE
     Dosage: 15 MG, UNK
     Route: 048
     Dates: start: 20140619
  8. MAGMITT [Concomitant]
     Active Substance: MAGNESIUM OXIDE
     Dosage: 1980 MG, UNK
     Route: 048
     Dates: start: 20140619
  9. OXINORM [Concomitant]
     Active Substance: OXYCODONE HYDROCHLORIDE
     Dosage: 15 MG, PRN
     Route: 048
     Dates: start: 20140623
  10. OSTELUC [Concomitant]
     Dosage: 400 MG, UNK
     Route: 048
     Dates: start: 20140619
  11. TEPRENONE [Concomitant]
     Active Substance: TEPRENONE
     Dosage: 150 MG, UNK
     Route: 048
     Dates: start: 20140619
  12. ZOMETA [Concomitant]
     Active Substance: ZOLEDRONIC ACID
     Dosage: 4 MG, UNK
     Route: 051
     Dates: start: 20140624, end: 20140624

REACTIONS (1)
  - Prostate cancer [Fatal]

NARRATIVE: CASE EVENT DATE: 20140831
